FAERS Safety Report 9160925 (Version 2)
Quarter: 2013Q2

REPORT INFORMATION
  Report Type: Report from Study
  Country: BE (occurrence: BE)
  Receive Date: 20130313
  Receipt Date: 20130410
  Transmission Date: 20140414
  Serious: Yes (Death, Hospitalization)
  Sender: FDA-Public Use
  Company Number: BE-INCYTE CORPORATION-2013IN000370

PATIENT
  Sex: 0

DRUGS (7)
  1. INC424 [Suspect]
     Indication: MYELOFIBROSIS
     Dosage: 44X2/D
     Route: 065
     Dates: start: 20110831, end: 20130216
  2. RANITIDINE [Concomitant]
  3. LISINOPRIL [Concomitant]
     Dosage: UNK
  4. BISOPROLOL [Concomitant]
  5. L-THYROXINE [Concomitant]
  6. FEMOSTON [Concomitant]
  7. ASAFLOW [Concomitant]

REACTIONS (1)
  - Central nervous system lesion [Fatal]
